FAERS Safety Report 5015287-4 (Version None)
Quarter: 2006Q2

REPORT INFORMATION
  Report Type: 
  Country: None (occurrence: None)
  Receive Date: 20060601
  Receipt Date: 20060522
  Transmission Date: 20061013
  Serious: Yes (Hospitalization)
  Sender: FDA-Public Use
  Company Number: GB-BRISTOL-MYERS SQUIBB COMPANY-13384714

PATIENT
  Age: 65 Year
  Sex: Female

DRUGS (5)
  1. CISPLATIN [Suspect]
     Indication: ENDOMETRIAL CANCER
     Dates: start: 20060310, end: 20060310
  2. DOXORUBICIN HCL [Suspect]
     Indication: ENDOMETRIAL CANCER
     Dates: start: 20060424, end: 20060424
  3. PACLITAXEL [Suspect]
     Indication: ENDOMETRIAL CANCER
     Dates: start: 20060424, end: 20060424
  4. IBUPROFEN [Concomitant]
     Dates: start: 20060101
  5. OMEPRAZOLE [Concomitant]
     Dates: start: 20060201

REACTIONS (1)
  - HERPES ZOSTER [None]
